FAERS Safety Report 5660576-3 (Version None)
Quarter: 2008Q1

REPORT INFORMATION
  Report Type: 
  Country: None (occurrence: None)
  Receive Date: 20080311
  Receipt Date: 20071120
  Transmission Date: 20080703
  Serious: No
  Sender: FDA-Public Use
  Company Number: US-BAYER-200713876BCC

PATIENT
  Age: 83 Year
  Sex: Male
  Weight: 73 kg

DRUGS (5)
  1. ALEVE [Suspect]
     Indication: MUSCULOSKELETAL PAIN
     Dosage: TOTAL DAILY DOSE: 440 MG  UNIT DOSE: 220 MG
     Route: 048
     Dates: start: 20071117, end: 20071117
  2. ALEVE [Suspect]
     Dosage: TOTAL DAILY DOSE: 440 MG  UNIT DOSE: 220 MG
     Route: 048
     Dates: start: 20071119, end: 20071119
  3. ALEVE [Suspect]
     Route: 048
     Dates: start: 20071119
  4. ALEVE [Suspect]
     Dosage: TOTAL DAILY DOSE: 440 MG  UNIT DOSE: 220 MG
     Route: 048
     Dates: start: 20071118, end: 20071118
  5. FINASTERIDE [Concomitant]

REACTIONS (2)
  - DIZZINESS [None]
  - HEART RATE INCREASED [None]
